FAERS Safety Report 7458136-7 (Version None)
Quarter: 2011Q2

REPORT INFORMATION
  Report Type: 
  Country: None (occurrence: None)
  Receive Date: 20110504
  Receipt Date: 20110421
  Transmission Date: 20111010
  Serious: Yes (Other)
  Sender: FDA-Public Use
  Company Number: PHHY2011FR29482

PATIENT
  Age: 84 Year
  Sex: Female
  Weight: 70 kg

DRUGS (7)
  1. GLEEVEC [Suspect]
     Dosage: 800 MG DAILY
     Dates: end: 20050101
  2. GLEEVEC [Suspect]
     Dosage: 600 MG,
     Dates: start: 20050415
  3. TASIGNA [Suspect]
     Indication: CHRONIC MYELOID LEUKAEMIA
     Dosage: 800 MG,
     Dates: start: 20080317, end: 20091220
  4. SPRYCEL [Suspect]
     Indication: CHRONIC MYELOID LEUKAEMIA
     Dosage: 100 MG,
     Dates: start: 20091221
  5. HYDREA [Suspect]
     Indication: CHRONIC MYELOID LEUKAEMIA
     Dosage: 1 G,
     Dates: start: 20051024, end: 20080316
  6. SPRYCEL [Suspect]
     Dosage: 50 MG,
     Dates: start: 20100127
  7. GLEEVEC [Suspect]
     Indication: CHRONIC MYELOID LEUKAEMIA
     Dosage: 400 MG DAILY
     Dates: start: 20021001

REACTIONS (4)
  - THERAPEUTIC RESPONSE DECREASED [None]
  - GENE MUTATION IDENTIFICATION TEST POSITIVE [None]
  - NEOPLASM MALIGNANT [None]
  - BREAST CANCER [None]
